FAERS Safety Report 8056207-8 (Version None)
Quarter: 2012Q1

REPORT INFORMATION
  Report Type: 
  Country: None (occurrence: None)
  Receive Date: 20120119
  Receipt Date: 20120110
  Transmission Date: 20120608
  Serious: Yes (Hospitalization)
  Sender: FDA-Public Use
  Company Number: US-BAYER-2011-038694

PATIENT
  Age: 21 Year
  Sex: Female
  Weight: 81.633 kg

DRUGS (5)
  1. HYDROCODONE BITARTRATE [Concomitant]
     Dosage: UNK UNK, PRN
  2. ZANTAC [Concomitant]
     Dosage: 150 MG, DAILY
  3. YASMIN [Suspect]
     Indication: CONTRACEPTION
     Dosage: UNK
     Dates: start: 20041001, end: 20090401
  4. PAROXETINE [Concomitant]
     Dosage: 40 MG, DAILY
  5. TRAZODONE HYDROCHLORIDE [Concomitant]
     Dosage: 75 MG, AT BEDTIME

REACTIONS (4)
  - CHOLELITHIASIS [None]
  - PAIN [None]
  - ANXIETY [None]
  - ANHEDONIA [None]
